FAERS Safety Report 7351566-3 (Version None)
Quarter: 2011Q1

REPORT INFORMATION
  Report Type: 
  Country: None (occurrence: None)
  Receive Date: 20110314
  Receipt Date: 20110311
  Transmission Date: 20110831
  Serious: Yes (Hospitalization)
  Sender: FDA-Public Use
  Company Number: GR-ABBOTT-11P-066-0708802-00

PATIENT
  Age: 38 Year
  Sex: Male
  Weight: 86.4 kg

DRUGS (10)
  1. AMLODIPINE [Concomitant]
     Indication: HYPERTENSION
     Route: 048
     Dates: start: 20090101
  2. CORTISONE [Concomitant]
     Indication: RENAL TRANSPLANT
     Route: 048
     Dates: start: 20030101
  3. OMEPRAZOLE [Concomitant]
     Indication: GASTRIC DISORDER
     Route: 048
  4. OMEPRAZOLE [Concomitant]
     Indication: PROPHYLAXIS
  5. ASPIRIN [Concomitant]
     Indication: ATRIAL FIBRILLATION
     Route: 048
  6. ZEMPLAR [Suspect]
     Indication: HYPERPARATHYROIDISM SECONDARY
     Dosage: DAILY
     Route: 048
     Dates: start: 20090719
  7. CELLCEPT [Suspect]
     Indication: RENAL TRANSPLANT
     Route: 048
     Dates: start: 20030101
  8. ERYTHROPOETIN [Concomitant]
     Indication: ANAEMIA
     Dosage: NOT RECEIVED SYSTEMATICALLY
  9. TACROLIMUS [Concomitant]
     Indication: RENAL TRANSPLANT
     Route: 048
     Dates: start: 20030101
  10. SEVELAMER [Concomitant]
     Indication: HYPERPARATHYROIDISM SECONDARY
     Route: 048

REACTIONS (1)
  - ANAEMIA [None]
